FAERS Safety Report 19739093 (Version 1)
Quarter: 2021Q3

REPORT INFORMATION
  Report Type: Spontaneous
  Country: US (occurrence: US)
  Receive Date: 20210824
  Receipt Date: 20210824
  Transmission Date: 20211014
  Serious: Yes (Other)
  Sender: FDA-Public Use
  Company Number: US-APOTEX-2021AP039107

PATIENT
  Age: 63 Year
  Sex: Female

DRUGS (3)
  1. PALBOCICLIB [Interacting]
     Active Substance: PALBOCICLIB
     Indication: PRODUCT USED FOR UNKNOWN INDICATION
     Dosage: UNK
     Route: 065
  2. IMATINIB. [Suspect]
     Active Substance: IMATINIB MESYLATE
     Indication: CHRONIC MYELOID LEUKAEMIA
     Dosage: 200 MILLIGRAM
     Route: 065
  3. IMATINIB. [Interacting]
     Active Substance: IMATINIB MESYLATE
     Dosage: 100 MILLIGRAM
     Route: 065

REACTIONS (4)
  - Drug interaction [Unknown]
  - Myalgia [Unknown]
  - Drug ineffective [Unknown]
  - Renal failure [Unknown]
